FAERS Safety Report 18751000 (Version 1)
Quarter: 2021Q1

REPORT INFORMATION
  Report Type: Spontaneous
  Country: SE (occurrence: SE)
  Receive Date: 20210118
  Receipt Date: 20210118
  Transmission Date: 20210419
  Serious: Yes (Other)
  Sender: FDA-Public Use
  Company Number: SE-TEVA-2021-SE-1869043

PATIENT
  Sex: Male
  Weight: 85 kg

DRUGS (1)
  1. VENLAFAXINE [Suspect]
     Active Substance: VENLAFAXINE HYDROCHLORIDE
     Indication: BURNOUT SYNDROME
     Dates: start: 2001

REACTIONS (5)
  - Derealisation [Recovered/Resolved]
  - Depressed mood [Recovered/Resolved]
  - Helplessness [Recovered/Resolved]
  - Withdrawal syndrome [Recovered/Resolved]
  - Head discomfort [Recovered/Resolved]
